FAERS Safety Report 5373216-8 (Version None)
Quarter: 2007Q2

REPORT INFORMATION
  Report Type: 
  Country: None (occurrence: None)
  Receive Date: 20070628
  Receipt Date: 20070622
  Transmission Date: 20071010
  Serious: Yes (Other)
  Sender: FDA-Public Use
  Company Number: PHEH2007US04264

PATIENT
  Age: 65 Year
  Sex: Female
  Weight: 65.759 kg

DRUGS (6)
  1. ZELNORM [Suspect]
     Indication: CONSTIPATION
     Dosage: 6 MG, BID
     Route: 048
     Dates: start: 20070327, end: 20070330
  2. GLUCOSAMINE SULFATE W/CHONDROITIN [Concomitant]
     Indication: ARTHRALGIA
     Dosage: UNK, QD
     Route: 048
  3. SINGULAIR [Concomitant]
     Indication: SEASONAL ALLERGY
     Dosage: 10 MG, QD
     Route: 048
  4. ALBUTEROL [Concomitant]
     Indication: ASTHMA
     Dosage: 1 INHALATION, PRN
  5. PREMARIN [Concomitant]
     Indication: HORMONE REPLACEMENT THERAPY
     Dosage: 0.625 MG, QD
     Route: 048
  6. ASPIRIN [Concomitant]
     Dosage: 325 MG, QD
     Route: 048

REACTIONS (8)
  - ATRIAL FIBRILLATION [None]
  - CARDIAC MONITORING [None]
  - CHEST PAIN [None]
  - DYSPNOEA [None]
  - ECHOCARDIOGRAM ABNORMAL [None]
  - ELECTROCARDIOGRAM T WAVE INVERSION [None]
  - PAIN IN EXTREMITY [None]
  - PALPITATIONS [None]
